FAERS Safety Report 10803076 (Version 3)
Quarter: 2015Q1

REPORT INFORMATION
  Report Type: Spontaneous
  Country: JP (occurrence: JP)
  Receive Date: 20150217
  Receipt Date: 20150226
  Transmission Date: 20150721
  Serious: Yes (Hospitalization)
  Sender: FDA-Public Use
  Company Number: JP-ASTRAZENECA-2015SE14894

PATIENT
  Age: 32 Year
  Sex: Female

DRUGS (4)
  1. JANUVIA [Concomitant]
     Active Substance: SITAGLIPTIN PHOSPHATE
     Route: 048
     Dates: start: 20141204, end: 20141209
  2. ACTOS [Concomitant]
     Active Substance: PIOGLITAZONE HYDROCHLORIDE
     Route: 048
     Dates: start: 20141204, end: 20141209
  3. FORXIGA [Suspect]
     Active Substance: DAPAGLIFLOZIN
     Indication: FULMINANT TYPE 1 DIABETES MELLITUS
     Dosage: DOSE UNKNOWN
     Route: 048
     Dates: start: 20141204, end: 20141209
  4. METGLUCO [Suspect]
     Active Substance: METFORMIN HYDROCHLORIDE
     Indication: HYPERGLYCAEMIA
     Dosage: NON-AZ DRUG, 750MG THREE TIMES A DAY
     Route: 048
     Dates: start: 20141204, end: 20141209

REACTIONS (1)
  - Diabetic ketoacidosis [Recovered/Resolved]

NARRATIVE: CASE EVENT DATE: 20141204
